FAERS Safety Report 10704355 (Version 1)
Quarter: 2014Q4

REPORT INFORMATION
  Report Type: Report from Study
  Country: US (occurrence: None)
  Receive Date: 20141224
  Receipt Date: 20141224
  Transmission Date: 20150529
  Serious: No
  Sender: FDA-Public Use
  Company Number: CABO-14004792

PATIENT
  Age: 85 Year
  Sex: Male
  Weight: 70.9 kg

DRUGS (6)
  1. COMETRIQ [Suspect]
     Active Substance: CABOZANTINIB S-MALATE
     Indication: PROSTATE CANCER
     Route: 048
     Dates: start: 20140923
  2. PREDNISONE (PREDNISONE) [Concomitant]
     Active Substance: PREDNISONE
  3. LOVASTATIN (LOVASTATIN) [Concomitant]
     Active Substance: LOVASTATIN
  4. VITAMINS NOS (VITAMINS NOS) [Concomitant]
     Active Substance: VITAMINS
  5. ASPIRIN (ACETYLSALICYLIC ACID) [Concomitant]
     Active Substance: ASPIRIN
  6. LISINOPRIL (LISINOPRIL) [Concomitant]
     Active Substance: LISINOPRIL

REACTIONS (5)
  - Off label use [None]
  - Decreased appetite [None]
  - Oral mucosal blistering [None]
  - Pain [None]
  - Fatigue [None]
